FAERS Safety Report 12140282 (Version 1)
Quarter: 2016Q1

REPORT INFORMATION
  Report Type: Spontaneous
  Country: US (occurrence: US)
  Receive Date: 20160303
  Receipt Date: 20160303
  Transmission Date: 20160526
  Serious: Yes (Other)
  Sender: FDA-Public Use
  Company Number: US-PFIZER INC-2016115437

PATIENT
  Age: 69 Year
  Sex: Female

DRUGS (1)
  1. ADRIAMYCIN [Suspect]
     Active Substance: DOXORUBICIN HYDROCHLORIDE
     Indication: BREAST CANCER
     Dosage: UNK

REACTIONS (2)
  - Cardiomegaly [Unknown]
  - Cardiac failure congestive [Unknown]
